FAERS Safety Report 23920591 (Version 1)
Quarter: 2024Q2

REPORT INFORMATION
  Report Type: Spontaneous
  Country: US (occurrence: None)
  Receive Date: 20240530
  Receipt Date: 20240530
  Transmission Date: 20240716
  Serious: Yes (Hospitalization)
  Sender: FDA-Public Use
  Company Number: None

PATIENT
  Sex: Female
  Weight: 54.4 kg

DRUGS (3)
  1. CAMPTOSAR [Suspect]
     Active Substance: IRINOTECAN HYDROCHLORIDE
     Dates: end: 20240321
  2. LEUCOVORIN CALCIUM [Suspect]
     Active Substance: LEUCOVORIN CALCIUM
     Dates: end: 20240321
  3. ELOXATIN [Suspect]
     Active Substance: OXALIPLATIN
     Dates: end: 20240321

REACTIONS (6)
  - Abdominal pain [None]
  - Abdominal abscess [None]
  - Urinary tract infection [None]
  - Seroma [None]
  - Pseudocyst [None]
  - Atelectasis [None]

NARRATIVE: CASE EVENT DATE: 20240525
